FAERS Safety Report 15499786 (Version 4)
Quarter: 2019Q4

REPORT INFORMATION
  Report Type: Spontaneous
  Country: JP (occurrence: JP)
  Receive Date: 20181015
  Receipt Date: 20191028
  Transmission Date: 20200122
  Serious: Yes (Hospitalization, Other)
  Sender: FDA-Public Use
  Company Number: JP-ELI_LILLY_AND_COMPANY-JP201810004741

PATIENT
  Age: 67 Year
  Sex: Male

DRUGS (5)
  1. 5 FU [Suspect]
     Active Substance: FLUOROURACIL
     Indication: HEAD AND NECK CANCER
     Dosage: 750 MG/M2, UNKNOWN
     Route: 041
     Dates: start: 20180831, end: 20180921
  2. CDDP [Suspect]
     Active Substance: CISPLATIN
     Indication: HEAD AND NECK CANCER
     Dosage: 75 MG/M2, UNKNOWN
     Route: 041
     Dates: start: 20180831, end: 20180921
  3. 5 FU [Suspect]
     Active Substance: FLUOROURACIL
     Dosage: 750 MG/M2, UNKNOWN
     Route: 041
     Dates: start: 201809
  4. ERBITUX [Suspect]
     Active Substance: CETUXIMAB
     Indication: HEAD AND NECK CANCER
     Dosage: 400 MG/M2, UNKNOWN
     Route: 041
     Dates: start: 20180831, end: 20180831
  5. ERBITUX [Suspect]
     Active Substance: CETUXIMAB
     Dosage: 250 MG/M2, UNKNOWN
     Route: 041
     Dates: start: 201809, end: 20180921

REACTIONS (3)
  - Peripheral artery thrombosis [Recovering/Resolving]
  - Post procedural sepsis [Recovering/Resolving]
  - Peripheral ischaemia [Recovering/Resolving]

NARRATIVE: CASE EVENT DATE: 20180921
